FAERS Safety Report 13384804 (Version 1)
Quarter: 2017Q1

REPORT INFORMATION
  Report Type: Spontaneous
  Country: US (occurrence: US)
  Receive Date: 20170329
  Receipt Date: 20170329
  Transmission Date: 20170429
  Serious: No
  Sender: FDA-Public Use
  Company Number: US-GREER LABORATORIES, INC.-1064795

PATIENT
  Age: 50 Year
  Sex: Female

DRUGS (10)
  1. MOLDS, RUSTS AND SMUTS, BIPOLARIS SOROKINIANA [Suspect]
     Active Substance: COCHLIOBOLUS SATIVUS
     Route: 058
  2. MOLDS, RUSTS AND SMUTS, GEOTRICHUM CANDIDUM [Suspect]
     Active Substance: GEOTRICHUM CANDIDUM
     Route: 058
  3. STANDARDIZED MITE DERMATOPHAGOIDES FARINAE [Suspect]
     Active Substance: DERMATOPHAGOIDES FARINAE
     Route: 058
  4. POLLENS - TREES, PECAN CARYA CARYA ILLINOENSIS [Suspect]
     Active Substance: CARYA ILLINOINENSIS POLLEN
     Route: 058
  5. STANDARDIZED MITE DERMATOPHAGOIDES PTERONYSSINUS [Suspect]
     Active Substance: DERMATOPHAGOIDES PTERONYSSINUS
     Route: 058
  6. SINGULAIR [Concomitant]
     Active Substance: MONTELUKAST SODIUM
     Route: 048
  7. ANTIHISTAMINE ALLERGY [Concomitant]
     Active Substance: DIPHENHYDRAMINE HYDROCHLORIDE
     Route: 048
  8. POLLENS - WEEDS AND GARDEN PLANTS, GOLDENROD SOLIDAGO CANADENSIS [Suspect]
     Active Substance: SOLIDAGO CANADENSIS POLLEN
     Route: 058
  9. POLLENS - WEEDS AND GARDEN PLANTS, COCKLEBUR XANTHIUM STRUMARIUM [Suspect]
     Active Substance: XANTHIUM STRUMARIUM POLLEN
     Indication: MULTIPLE ALLERGIES
     Route: 058
  10. POLLENS - TREES, GS 3 MAPLE MIX ACER RUBRUM\ACER SACCHARINUM\ACER SACC [Suspect]
     Active Substance: ACER RUBRUM POLLEN\ACER SACCHARINUM POLLEN\ACER SACCHARUM POLLEN
     Route: 058

REACTIONS (2)
  - Injection site erythema [Recovered/Resolved]
  - Injection site pruritus [Recovered/Resolved]

NARRATIVE: CASE EVENT DATE: 20170224
